FAERS Safety Report 21848872 (Version 1)
Quarter: 2023Q1

REPORT INFORMATION
  Report Type: Spontaneous
  Country: IN (occurrence: IN)
  Receive Date: 20230111
  Receipt Date: 20230111
  Transmission Date: 20230418
  Serious: Yes (Other)
  Sender: FDA-Public Use
  Company Number: IN-PFIZER INC-PV202300004838

PATIENT
  Age: 42 Year
  Sex: Male

DRUGS (1)
  1. CRIZOTINIB [Suspect]
     Active Substance: CRIZOTINIB
     Dosage: UNK
     Route: 048

REACTIONS (5)
  - Deafness [Unknown]
  - Chest pain [Unknown]
  - Diarrhoea [Unknown]
  - Tension [Unknown]
  - Cerebral disorder [Unknown]
